FAERS Safety Report 6479625-8 (Version None)
Quarter: 2009Q4

REPORT INFORMATION
  Report Type: 
  Country: None (occurrence: None)
  Receive Date: 20091207
  Receipt Date: 20091207
  Transmission Date: 20100525
  Serious: Yes (Hospitalization, Other)
  Sender: FDA-Public Use
  Company Number: None

PATIENT
  Sex: Female

DRUGS (1)
  1. LEFLUNOMIDE [Suspect]
     Indication: GRAFT VERSUS HOST DISEASE
     Dosage: Q24HR
     Route: 048
     Dates: start: 20090513

REACTIONS (20)
  - ATRIAL HYPERTROPHY [None]
  - COMPUTERISED TOMOGRAM ABNORMAL [None]
  - CONGESTIVE CARDIOMYOPATHY [None]
  - COUGH [None]
  - CYTOMEGALOVIRUS MYOCARDITIS [None]
  - DYSPNOEA EXERTIONAL [None]
  - INFECTION [None]
  - ISCHAEMIC CARDIOMYOPATHY [None]
  - LEFT VENTRICULAR DYSFUNCTION [None]
  - LEFT VENTRICULAR FAILURE [None]
  - LEFT VENTRICULAR HYPERTROPHY [None]
  - LUNG DISORDER [None]
  - MITRAL VALVE INCOMPETENCE [None]
  - PERICARDIAL EFFUSION [None]
  - PLEURAL EFFUSION [None]
  - PULMONARY HYPERTENSION [None]
  - SINUS TACHYCARDIA [None]
  - TRICUSPID VALVE INCOMPETENCE [None]
  - VENTRICULAR HYPERTROPHY [None]
  - VIRAL INFECTION [None]
